FAERS Safety Report 8344655-8 (Version None)
Quarter: 2012Q2

REPORT INFORMATION
  Report Type: 
  Country: None (occurrence: None)
  Receive Date: 20120508
  Receipt Date: 20120430
  Transmission Date: 20120825
  Serious: Yes (Hospitalization, Other)
  Sender: FDA-Public Use
  Company Number: RU-ROCHE-1039016

PATIENT
  Sex: Female

DRUGS (3)
  1. COPEGUS [Suspect]
     Indication: HEPATITIS C
     Dosage: FORM OF ADMINISTRATION: TA
     Route: 048
     Dates: start: 20111024
  2. PEGASYS [Suspect]
     Indication: HEPATITIS C
     Dosage: FORM: SPI
     Route: 058
     Dates: start: 20111024
  3. BLINDED BI 201335 (HCV PROTEASE INHIBITOR) [Suspect]
     Indication: HEPATITIS C
     Dosage: DAILY DOSE: 1 ANZ, FORM OF ADMINISTRATION: KAW
     Route: 048
     Dates: start: 20111024

REACTIONS (2)
  - APPENDICITIS [None]
  - TOXIC SKIN ERUPTION [None]
